FAERS Safety Report 10602156 (Version 3)
Quarter: 2015Q1

REPORT INFORMATION
  Report Type: Report from Study
  Country: DE (occurrence: DE)
  Receive Date: 20141124
  Receipt Date: 20150226
  Transmission Date: 20150720
  Serious: Yes (Hospitalization)
  Sender: FDA-Public Use
  Company Number: DE-ABBVIE-14K-062-1311029-00

PATIENT
  Age: 53 Year
  Sex: Male
  Weight: 88 kg

DRUGS (10)
  1. HUMIRA [Suspect]
     Active Substance: ADALIMUMAB
     Route: 058
     Dates: start: 20141014, end: 20141116
  2. AZATHIOPRINE. [Concomitant]
     Active Substance: AZATHIOPRINE
     Indication: CROHN^S DISEASE
     Route: 048
     Dates: start: 2011, end: 20141116
  3. AZATHIOPRINE. [Concomitant]
     Active Substance: AZATHIOPRINE
     Route: 048
     Dates: start: 20141223
  4. HUMIRA [Suspect]
     Active Substance: ADALIMUMAB
     Route: 058
     Dates: start: 20141223
  5. MORPHINE [Concomitant]
     Active Substance: MORPHINE
     Indication: SPINAL COLUMN INJURY
  6. MORPHINE [Concomitant]
     Active Substance: MORPHINE
     Indication: CRANIOCEREBRAL INJURY
     Dates: start: 2009
  7. HUMIRA [Suspect]
     Active Substance: ADALIMUMAB
     Indication: CROHN^S DISEASE
     Route: 058
     Dates: start: 20111011
  8. CORTISONE [Concomitant]
     Active Substance: CORTISONE\HYDROCORTISONE
     Indication: PRODUCT USED FOR UNKNOWN INDICATION
  9. PANTOPRAZOLE [Concomitant]
     Active Substance: PANTOPRAZOLE SODIUM
     Indication: PRODUCT USED FOR UNKNOWN INDICATION
  10. PREDNISOLONE. [Concomitant]
     Active Substance: PREDNISOLONE
     Indication: ENDOCRINE DISORDER
     Route: 048

REACTIONS (15)
  - Neutrophil count increased [Unknown]
  - Escherichia sepsis [Unknown]
  - Crohn^s disease [Unknown]
  - Lymphocyte count decreased [Unknown]
  - Red blood cell count decreased [Unknown]
  - Urosepsis [Unknown]
  - Eosinophil count decreased [Unknown]
  - C-reactive protein decreased [Unknown]
  - Haematocrit decreased [Unknown]
  - Prostatomegaly [Recovered/Resolved]
  - Prostatic obstruction [Recovered/Resolved]
  - Haemoglobin decreased [Unknown]
  - Serum ferritin decreased [Unknown]
  - Monocyte count decreased [Unknown]
  - Transferrin saturation decreased [Unknown]

NARRATIVE: CASE EVENT DATE: 2014
